FAERS Safety Report 7176567-X (Version None)
Quarter: 2010Q4

REPORT INFORMATION
  Report Type: 
  Country: None (occurrence: None)
  Receive Date: 20101216
  Receipt Date: 20101216
  Transmission Date: 20110411
  Serious: No
  Sender: FDA-Public Use
  Company Number: None

PATIENT
  Age: 59 Year
  Sex: Female
  Weight: 61.2356 kg

DRUGS (1)
  1. CLONAZEPAM [Suspect]
     Indication: ANXIETY DISORDER
     Dosage: .5MG 2X DAILY PO
     Route: 048
     Dates: start: 20100910, end: 20101210

REACTIONS (4)
  - DRUG WITHDRAWAL SYNDROME [None]
  - PANIC REACTION [None]
  - PRODUCT QUALITY ISSUE [None]
  - PRODUCT SUBSTITUTION ISSUE [None]
